FAERS Safety Report 13937162 (Version 7)
Quarter: 2018Q3

REPORT INFORMATION
  Report Type: Spontaneous
  Country: PL (occurrence: PL)
  Receive Date: 20170905
  Receipt Date: 20180803
  Transmission Date: 20181010
  Serious: Yes (Life-Threatening, Hospitalization, Disabling, Other)
  Sender: FDA-Public Use
  Company Number: PHHY2017PL129784

PATIENT

DRUGS (39)
  1. ATORVASTATIN [Suspect]
     Active Substance: ATORVASTATIN
     Indication: SUICIDE ATTEMPT
     Dosage: UNK
     Route: 065
  2. ESCITALOPRAM [Suspect]
     Active Substance: ESCITALOPRAM OXALATE
     Indication: AFFECTIVE DISORDER
     Dosage: 10 MG, UNK
     Route: 065
  3. ATORVASTATIN [Suspect]
     Active Substance: ATORVASTATIN
     Dosage: UNK, QHS
     Route: 048
  4. ZOLPIDEM [Suspect]
     Active Substance: ZOLPIDEM\ZOLPIDEM TARTRATE
     Indication: DEPRESSION
     Dosage: 10 MG, QHS
     Route: 065
  5. ZOLPIDEM [Suspect]
     Active Substance: ZOLPIDEM\ZOLPIDEM TARTRATE
     Dosage: 10 MG, QHS
     Route: 048
  6. SERTRALINE [Suspect]
     Active Substance: SERTRALINE HYDROCHLORIDE
     Indication: DEPRESSION
     Dosage: 50 MG, QD
     Route: 065
  7. ESCITALOPRAM [Suspect]
     Active Substance: ESCITALOPRAM OXALATE
     Indication: INSOMNIA
     Dosage: DOCTOR SWITCHED THE PATIENT FROM SERTRALINE TO ESCITALOPRAM
     Route: 065
  8. ESCITALOPRAM [Suspect]
     Active Substance: ESCITALOPRAM OXALATE
     Dosage: 10 MG, HS (DOCTOR SWITCHED THE PATIENT FROM SERTRALINE TO ESCITALOPRAM)
     Route: 048
  9. PERINDOPRIL [Suspect]
     Active Substance: PERINDOPRIL
     Indication: SUICIDE ATTEMPT
     Dosage: UNK
     Route: 065
  10. DOXEPIN [Suspect]
     Active Substance: DOXEPIN
     Indication: DEPRESSED MOOD
  11. POLSEN [Suspect]
     Active Substance: ZOLPIDEM TARTRATE
     Indication: SLEEP DISORDER
     Dosage: 10 MG, (OD AT BEDTIME)
     Route: 048
  12. CONCOR [Suspect]
     Active Substance: BISOPROLOL FUMARATE
     Indication: HYPERTENSION
  13. SERTRALINE [Suspect]
     Active Substance: SERTRALINE HYDROCHLORIDE
     Dosage: 50 MG, QD
     Route: 048
  14. PERINDOPRIL [Suspect]
     Active Substance: PERINDOPRIL
     Indication: HYPERTENSION
     Dosage: UNK
     Route: 065
  15. ZOLPIDEM [Suspect]
     Active Substance: ZOLPIDEM\ZOLPIDEM TARTRATE
     Indication: DEPRESSED MOOD
     Dosage: B/D
     Route: 048
  16. ZOLPIDEM [Suspect]
     Active Substance: ZOLPIDEM\ZOLPIDEM TARTRATE
     Dosage: 10 MG, QHS
     Route: 048
  17. CLARITHROMYCIN. [Suspect]
     Active Substance: CLARITHROMYCIN
     Dosage: UNK
     Route: 065
  18. TRAMADOL. [Suspect]
     Active Substance: TRAMADOL
     Indication: ARTHRALGIA
     Dosage: UNK
     Route: 065
  19. MELOXICAM. [Suspect]
     Active Substance: MELOXICAM
     Dosage: TRAMADOL IN COMBINATION WITH MELOXICAM, FOR ABOUT TWO YEARS AGO
     Route: 048
  20. ATORIS [Suspect]
     Active Substance: ATORVASTATIN CALCIUM
     Indication: PRODUCT USED FOR UNKNOWN INDICATION
     Route: 065
  21. BISOPROLOL [Suspect]
     Active Substance: BISOPROLOL
     Dosage: UNK
     Route: 065
  22. CLARITHROMYCIN. [Suspect]
     Active Substance: CLARITHROMYCIN
     Dosage: TWO 10 DAY CYCLES.
     Route: 048
  23. ESCITALOPRAM [Suspect]
     Active Substance: ESCITALOPRAM OXALATE
     Indication: DEPRESSION
     Dosage: 10 MG, BEFORE SLEEPING
     Route: 048
  24. MELOXICAM. [Suspect]
     Active Substance: MELOXICAM
     Indication: ARTHRALGIA
     Dosage: UNK
     Route: 065
  25. MELOXICAM. [Suspect]
     Active Substance: MELOXICAM
     Indication: OSTEOARTHRITIS
     Dosage: B/D
     Route: 048
  26. DOXEPIN [Suspect]
     Active Substance: DOXEPIN
     Indication: AFFECTIVE DISORDER
     Dosage: 25 MG, QHS
     Route: 065
  27. ATORVASTATIN [Suspect]
     Active Substance: ATORVASTATIN
     Indication: HYPERCHOLESTEROLAEMIA
     Dosage: B/D
     Route: 048
  28. CLARITHROMYCIN. [Suspect]
     Active Substance: CLARITHROMYCIN
     Dosage: UNK
     Route: 065
  29. POLSEN [Suspect]
     Active Substance: ZOLPIDEM TARTRATE
     Indication: DEPRESSION
     Dosage: 10 MG, (OD AT BED TIME)
     Route: 065
  30. CONCOR [Suspect]
     Active Substance: BISOPROLOL FUMARATE
     Indication: SUICIDE ATTEMPT
     Route: 065
  31. BISOPROLOL [Suspect]
     Active Substance: BISOPROLOL
     Indication: SUICIDE ATTEMPT
     Dosage: UNK
     Route: 065
  32. CLARITHROMYCIN. [Suspect]
     Active Substance: CLARITHROMYCIN
     Indication: TINNITUS
     Dosage: TWO 10 DAY COURSES
     Route: 065
  33. ESCITALOPRAM [Suspect]
     Active Substance: ESCITALOPRAM OXALATE
     Dosage: UNK
     Route: 065
  34. TRAMADOL. [Suspect]
     Active Substance: TRAMADOL
     Dosage: UNK
     Route: 065
  35. TROSICAM [Suspect]
     Active Substance: MELOXICAM
     Indication: ARTHRALGIA
     Dosage: UNK
     Route: 065
  36. ATORIS [Suspect]
     Active Substance: ATORVASTATIN CALCIUM
     Indication: SUICIDE ATTEMPT
  37. SERTRALINE [Suspect]
     Active Substance: SERTRALINE HYDROCHLORIDE
     Indication: DEPRESSED MOOD
     Dosage: 50 MG IN THE MORNING
     Route: 065
  38. TRAMADOL. [Suspect]
     Active Substance: TRAMADOL
     Indication: OSTEOARTHRITIS
     Dosage: UNK
     Route: 065
  39. TRAMADOL. [Suspect]
     Active Substance: TRAMADOL
     Dosage: TRAMADOL IN COMBINATION WITH MELOXICAM FOR ABOUT TWO YEARS AGO
     Route: 065

REACTIONS (15)
  - Suicide attempt [Recovered/Resolved]
  - Insomnia [Recovering/Resolving]
  - Overdose [Recovered/Resolved]
  - Impaired work ability [Recovered/Resolved]
  - Intentional overdose [Unknown]
  - Intentional product misuse [Recovering/Resolving]
  - Affective disorder [Recovering/Resolving]
  - Condition aggravated [Recovering/Resolving]
  - Depression [Recovering/Resolving]
  - Loss of consciousness [Recovered/Resolved]
  - Loss of personal independence in daily activities [Recovered/Resolved]
  - Tinnitus [Recovered/Resolved]
  - Product use in unapproved indication [Recovered/Resolved]
  - Drug abuse [Unknown]
  - Drug ineffective [Unknown]
